FAERS Safety Report 9485035 (Version 2)
Quarter: 2013Q3

REPORT INFORMATION
  Report Type: Spontaneous
  Country: US (occurrence: US)
  Receive Date: 20130828
  Receipt Date: 20130925
  Transmission Date: 20140515
  Serious: Yes (Hospitalization, Other)
  Sender: FDA-Public Use
  Company Number: US-PFIZER INC-2013244253

PATIENT
  Age: 44 Year
  Sex: Male

DRUGS (31)
  1. GLUCOTROL [Suspect]
     Indication: DIABETES MELLITUS
     Dosage: 5 MG, 2X/DAY
     Route: 048
  2. CHANTIX [Suspect]
     Dosage: 0.5 MG, UNK
  3. CHANTIX [Suspect]
     Dosage: 1 MG, UNK
  4. AMITRIPTYLINE HYDROCHLORIDE [Concomitant]
     Dosage: 20 MG, 1X/DAY (10 MG 2 TABLETS AT BEDTIME )
  5. GLIPIZIDE [Concomitant]
     Dosage: 5 MG, 2X/DAY
  6. METFORMIN HYDROCHLORIDE [Concomitant]
     Dosage: 500 MG, 2X/DAY
  7. METFORMIN HYDROCHLORIDE [Concomitant]
     Dosage: 1000 MG, 2X/DAY
  8. HUMULIN [Concomitant]
     Dosage: 7.5 UNITS IN THE MORNING THEN 5 UNITS IN THE EVENING.
  9. CRESTOR [Concomitant]
     Dosage: 10 MG, 1X/DAY
  10. ACETYLSALICYLIC ACID [Concomitant]
     Dosage: 81 MG, 1X/DAY
  11. ATORVASTATIN [Concomitant]
     Dosage: 40 MG, 1X/DAY
  12. BACLOFEN [Concomitant]
     Dosage: 10 MG, 1X/DAY (AT BED TIME)
  13. BISACODYL [Concomitant]
     Dosage: 10 MG, 1X/DAY (AS NEEDED)
     Route: 054
  14. BUSPIRONE [Concomitant]
     Dosage: 5 MG, 2X/DAY
  15. CARVEDILOL [Concomitant]
     Dosage: 6.25 MG, 2X/DAY
  16. DOCUSATE [Concomitant]
     Dosage: 100 MG, 1X/DAY
     Route: 048
  17. FUROSEMIDE [Concomitant]
     Dosage: 40 MG, 2X/DAY
  18. GABAPENTIN [Concomitant]
     Dosage: 300 MG, 1X/DAY
  19. GUAR GUM [Concomitant]
     Dosage: TAKE 1 PACKET BEFORE LUNCH
     Route: 048
  20. HYDROCODONE BITARTRATE, PARACETAMOL [Concomitant]
     Dosage: 15MLS EVERY 4 HOURS AS NEEDED
  21. INSULIN, REGULAR [Concomitant]
     Dosage: 3-14 UNITS
     Route: 058
  22. LISINOPRIL [Concomitant]
     Dosage: 2.5 MG, 1X/DAY
  23. NORTRIPTYLINE [Concomitant]
     Dosage: 10 MG, 1X/DAY (AT BEDTIME)
  24. OMEPRAZOLE [Concomitant]
     Dosage: 10 ML, DAILY
  25. ONDANSETRON [Concomitant]
     Dosage: 4 MG, (EVERY 6 HOURS) AS NEEDED
     Route: 048
  26. BENZYL ALCOHOL, SODIUM CHLORIDE [Concomitant]
     Dosage: 0.65 %, 4X/DAY
  27. NIACIN [Concomitant]
     Dosage: 500 MG, 1X/DAY AT BEDTIME
  28. ACETAMINOPHEN [Concomitant]
     Indication: PAIN
     Dosage: 650 MG, AS NEEDED
     Route: 048
  29. FISH OIL [Concomitant]
     Dosage: 1000 MG, UNK
  30. HYDROCHLOROTHIAZIDE [Concomitant]
     Dosage: 25 MG, UNK
  31. ZYRTEC [Concomitant]
     Indication: HYPERSENSITIVITY
     Dosage: 10 MG, 1X/DAY
     Route: 048

REACTIONS (5)
  - Ischaemic stroke [Unknown]
  - Hemiplegia [Not Recovered/Not Resolved]
  - Nervous system disorder [Unknown]
  - Pneumonia [Recovered/Resolved]
  - Hypoaesthesia [Unknown]
